FAERS Safety Report 14921475 (Version 1)
Quarter: 2018Q2

REPORT INFORMATION
  Report Type: Spontaneous
  Country: FR (occurrence: FR)
  Receive Date: 20180522
  Receipt Date: 20180522
  Transmission Date: 20180711
  Serious: Yes (Other)
  Sender: FDA-Public Use
  Company Number: FR-MERCK KGAA-2048191

PATIENT
  Age: 52 Year
  Sex: Female

DRUGS (1)
  1. NOVOTHYROX [Suspect]
     Active Substance: LEVOTHYROXINE SODIUM
     Indication: HYPOTHYROIDISM

REACTIONS (26)
  - Gait disturbance [None]
  - Social avoidant behaviour [None]
  - Mean cell haemoglobin decreased [None]
  - Sleep disorder [None]
  - Vertigo [Recovering/Resolving]
  - Mean platelet volume increased [None]
  - Impaired work ability [None]
  - Monocyte count increased [None]
  - C-reactive protein increased [None]
  - Irritability [None]
  - Asthenia [Recovering/Resolving]
  - Red cell distribution width increased [None]
  - Weight increased [Recovering/Resolving]
  - Alopecia [Recovering/Resolving]
  - Crying [None]
  - Depressed mood [None]
  - Mean cell volume decreased [None]
  - Aspartate aminotransferase increased [None]
  - Fatigue [None]
  - Myalgia [Recovering/Resolving]
  - Vitamin D decreased [None]
  - Basophil count increased [None]
  - Muscle spasms [None]
  - Haemoglobin decreased [None]
  - Haematocrit decreased [None]
  - Middle insomnia [None]

NARRATIVE: CASE EVENT DATE: 201705
